FAERS Safety Report 10067783 (Version 2)
Quarter: 2014Q3

REPORT INFORMATION
  Report Type: Spontaneous
  Country: US (occurrence: None)
  Receive Date: 20140407
  Receipt Date: 20140922
  Transmission Date: 20150326
  Serious: Yes (Hospitalization)
  Sender: FDA-Public Use
  Company Number: 2013US001800

PATIENT
  Age: 45 Year
  Sex: Male
  Weight: 120 kg

DRUGS (18)
  1. PONATINIB (AP24534) TABLET [Suspect]
     Active Substance: PONATINIB
     Indication: CHRONIC MYELOID LEUKAEMIA
     Route: 048
     Dates: start: 20110331
  2. ATIVAN [Concomitant]
     Active Substance: LORAZEPAM
  3. CEPHALEXIN (CEFALEXIN MONOHYDRATE) [Concomitant]
  4. ZOFRAN (ONDANSETRON HYDROCHLORIDE) [Concomitant]
  5. FLAXSEED [Concomitant]
     Active Substance: FLAX SEED
  6. OXYCODONE [Concomitant]
     Active Substance: OXYCODONE
  7. SIMVASTATIN. [Concomitant]
     Active Substance: SIMVASTATIN
  8. ASPIRIN (ACETYLSALICYLIC ACID) [Concomitant]
     Active Substance: ASPIRIN
  9. LEXAPRO [Concomitant]
     Active Substance: ESCITALOPRAM OXALATE
  10. CLONIDINE (CLONIDINE HYDROCHLORIDE) [Concomitant]
  11. PHENERGAN [Concomitant]
     Active Substance: PROMETHAZINE HYDROCHLORIDE
  12. ZIAC (BISOPROLOL FUMARATE, HYDROCHLOROTHIAZIDE) [Concomitant]
  13. ZANTAC [Concomitant]
     Active Substance: RANITIDINE HYDROCHLORIDE
  14. ZANAFLEX [Concomitant]
     Active Substance: TIZANIDINE HYDROCHLORIDE
  15. ALUMINUM HYDROXIDE W/MAGNESIUM HYDROXIDE [Concomitant]
  16. MULTIVITAMINS W/MINERALS (MINERALS NOS, VITAMINS NOS) [Concomitant]
  17. DIPHENHYDRAMINE (DIPHENHYDRAMINE HYDROCHLORIDE) (UNKNOWN) (DIPHENHYDRAMINE HYDROCHLORIDE) [Concomitant]
     Active Substance: DIPHENHYDRAMINE
  18. VITAMIN B12 (HYDROXOCOBALAMIN) [Concomitant]

REACTIONS (3)
  - Deep vein thrombosis [None]
  - Cellulitis [None]
  - Thrombophlebitis [None]

NARRATIVE: CASE EVENT DATE: 20130610
